FAERS Safety Report 4719303-6 (Version None)
Quarter: 2005Q3

REPORT INFORMATION
  Report Type: 
  Country: None (occurrence: None)
  Receive Date: 20050721
  Receipt Date: 20041110
  Transmission Date: 20060218
  Serious: No
  Sender: FDA-Public Use
  Company Number: US-GLAXOSMITHKLINE-A0533797A

PATIENT
  Age: 58 Year
  Sex: Female

DRUGS (7)
  1. MALARONE [Suspect]
     Route: 048
     Dates: start: 20040101
  2. ULTRACET [Concomitant]
     Indication: PSORIASIS
     Route: 061
     Dates: start: 20030101
  3. DOVONEX [Concomitant]
     Route: 061
     Dates: start: 20030101
  4. ALLEGRA [Concomitant]
     Dates: start: 20030101
  5. FOSAMAX [Concomitant]
     Dates: start: 20030101
  6. CORTISONE [Concomitant]
     Route: 042
  7. WELLBUTRIN [Concomitant]

REACTIONS (2)
  - ALOPECIA [None]
  - NAUSEA [None]
